FAERS Safety Report 8512312 (Version 2)
Quarter: 2014Q2

REPORT INFORMATION
  Report Type: Spontaneous
  Country: US (occurrence: US)
  Receive Date: 20120413
  Receipt Date: 20140401
  Transmission Date: 20141212
  Serious: No
  Sender: FDA-Public Use
  Company Number: US-ASTRAZENECA-2011SE57020

PATIENT
  Age: 76 Year
  Sex: Female
  Weight: 54 kg

DRUGS (14)
  1. NEXIUM [Suspect]
     Route: 048
  2. CRESTOR [Suspect]
     Indication: BLOOD CHOLESTEROL INCREASED
     Route: 048
  3. AMLODIPINE [Concomitant]
     Indication: HYPERTENSION
  4. ASPIRIN [Concomitant]
     Indication: COAGULOPATHY
  5. XANAX [Concomitant]
     Indication: SLEEP DISORDER
  6. BIOTIN SHAMPOO [Concomitant]
     Indication: ALOPECIA
  7. PLAVIX [Concomitant]
     Indication: STENT PLACEMENT
  8. ZYRTEC [Concomitant]
     Indication: HYPERSENSITIVITY
  9. HAIR SKIN AND NAIL VITAMIN [Concomitant]
  10. ZETIA [Concomitant]
     Indication: BLOOD CHOLESTEROL
  11. SINGULAIR [Concomitant]
     Indication: ASTHMA
  12. POTASSIUM [Concomitant]
     Indication: MUSCLE SPASMS
  13. PANTOPRAZOLE [Concomitant]
     Indication: ABDOMINAL DISCOMFORT
  14. MULTIVITAMIN [Concomitant]

REACTIONS (9)
  - Gastric disorder [Unknown]
  - Oesophageal disorder [Unknown]
  - Gastrooesophageal reflux disease [Unknown]
  - Pain [Unknown]
  - Peripheral vascular disorder [Unknown]
  - Stress [Unknown]
  - Trichorrhexis [Recovering/Resolving]
  - Off label use [Unknown]
  - Intentional product misuse [Unknown]
